FAERS Safety Report 6781437-2 (Version None)
Quarter: 2010Q2

REPORT INFORMATION
  Report Type: 
  Country: None (occurrence: None)
  Receive Date: 20100621
  Receipt Date: 20100615
  Transmission Date: 20101027
  Serious: Yes (Hospitalization)
  Sender: FDA-Public Use
  Company Number: US-ROCHE-631567

PATIENT
  Sex: Female
  Weight: 65.9 kg

DRUGS (13)
  1. TRASTUZUMAB [Suspect]
     Indication: BREAST CANCER
     Dosage: DOSE FORM: VIALS, DOSE LEVEL: 8 MG/KG, DATE OF LAST DOSE PRIOR TO SAE: 24 APRIL 2009
     Route: 042
     Dates: start: 20090424
  2. BEVACIZUMAB [Suspect]
     Indication: BREAST CANCER
     Dosage: DOSE FORM: VIALS, DOSE LEVEL: 15 MG/KG, DATE OF LAST DOSE PRIOR TO SAE: 24 APRIL 2009
     Route: 042
     Dates: start: 20090424
  3. DOCETAXEL [Suspect]
     Indication: BREAST CANCER
     Dosage: DOSE FORM: VIALS, DOSE LEVEL: 75 MG/M2, DATE OF LAST DOSE PRIOR TO SAE: 24 APRIL 2009
     Route: 042
     Dates: start: 20090424
  4. CARBOPLATIN [Suspect]
     Indication: BREAST CANCER
     Dosage: DOSE FORM: VIALS, DOSE LEVEL: 6 AUC, DATE OF LAST DOSE PRIOR TO SAE: 24 APRIL 2009
     Route: 042
     Dates: start: 20090424
  5. TYLENOL [Concomitant]
     Dates: start: 20090304
  6. PRILOSEC [Concomitant]
     Dates: start: 20090417, end: 20090430
  7. IMODIUM [Concomitant]
     Dates: start: 20090428
  8. NEXIUM [Concomitant]
     Dates: start: 20090430
  9. FLAGYL [Concomitant]
     Dates: start: 20090430, end: 20090507
  10. DIFLUCAN [Concomitant]
     Dates: start: 20090430, end: 20090430
  11. LEVAQUIN [Concomitant]
     Dates: start: 20090430, end: 20090501
  12. ATIVAN [Concomitant]
     Dates: start: 20090430, end: 20090430
  13. SODIUM CHLORIDE [Concomitant]
     Dates: start: 20090430, end: 20090503

REACTIONS (3)
  - ABDOMINAL PAIN [None]
  - DIARRHOEA [None]
  - GASTROINTESTINAL HAEMORRHAGE [None]
